FAERS Safety Report 14979706 (Version 1)
Quarter: 2018Q2

REPORT INFORMATION
  Report Type: Report from Study
  Country: BR (occurrence: BR)
  Receive Date: 20180606
  Receipt Date: 20180606
  Transmission Date: 20180711
  Serious: Yes (Hospitalization)
  Sender: FDA-Public Use
  Company Number: PHHY2017BR196325

PATIENT
  Age: 76 Year
  Sex: Female
  Weight: 59 kg

DRUGS (3)
  1. EXELON PATCH [Suspect]
     Active Substance: RIVASTIGMINE
     Indication: ELECTROENCEPHALOGRAM ABNORMAL
     Dosage: 9.5 MG, QD PATCH 10 (CM2)
     Route: 062
     Dates: start: 20180326, end: 20180326
  2. EXELON PATCH [Suspect]
     Active Substance: RIVASTIGMINE
     Dosage: 4.6 MG, QD PATCH 5 (CM2)
     Route: 062
     Dates: start: 20180327
  3. EXELON PATCH [Suspect]
     Active Substance: RIVASTIGMINE
     Indication: MEMORY IMPAIRMENT
     Dosage: 4.6 MG, QD PATCH 5 (CM2)
     Route: 062
     Dates: start: 201709

REACTIONS (10)
  - General physical condition abnormal [Recovering/Resolving]
  - Peripheral swelling [Not Recovered/Not Resolved]
  - Malaise [Recovering/Resolving]
  - Decreased appetite [Recovering/Resolving]
  - Nausea [Recovering/Resolving]
  - Erythema [Not Recovered/Not Resolved]
  - Abdominal discomfort [Recovering/Resolving]
  - Haematemesis [Recovered/Resolved]
  - Fluid intake reduced [Not Recovered/Not Resolved]
  - Hypophagia [Recovering/Resolving]

NARRATIVE: CASE EVENT DATE: 20180326
